FAERS Safety Report 7769275-5 (Version None)
Quarter: 2011Q3

REPORT INFORMATION
  Report Type: 
  Country: None (occurrence: None)
  Receive Date: 20110922
  Receipt Date: 20110915
  Transmission Date: 20111222
  Serious: Yes (Hospitalization)
  Sender: FDA-Public Use
  Company Number: DE-ROCHE-796412

PATIENT
  Sex: Female
  Weight: 73 kg

DRUGS (5)
  1. HYDROXYCHLOROQUINE SULFATE [Concomitant]
     Indication: RHEUMATOID ARTHRITIS
  2. CORTICOSTEROIDS [Concomitant]
  3. ARAVA [Concomitant]
     Indication: RHEUMATOID ARTHRITIS
     Route: 048
  4. TOCILIZUMAB [Suspect]
     Indication: RHEUMATOID ARTHRITIS
     Dosage: DATE OF RECENT DOSE PRIOR TO SAE: 04 MAY 2011.
     Route: 042
     Dates: start: 20110201
  5. TOCILIZUMAB [Suspect]
     Route: 042
     Dates: start: 20110804

REACTIONS (1)
  - BENIGN SALIVARY GLAND NEOPLASM [None]
